FAERS Safety Report 4440691-2 (Version None)
Quarter: 2004Q3

REPORT INFORMATION
  Report Type: 
  Country: None (occurrence: None)
  Receive Date: 20040903
  Receipt Date: 20040825
  Transmission Date: 20050211
  Serious: Yes (Hospitalization)
  Sender: FDA-Public Use
  Company Number: JP-JNJFOC-20040900001

PATIENT
  Sex: Female

DRUGS (7)
  1. FENTANYL [Suspect]
     Indication: CANCER PAIN
     Route: 062
  2. CISPLATIN [Suspect]
     Indication: GASTRIC CANCER
     Route: 033
  3. MORPHINE HYDROCHLORIDE [Concomitant]
     Indication: CANCER PAIN
     Route: 051
  4. METOCLOPRAMIDE [Concomitant]
     Dosage: PRN
     Route: 042
  5. AZASETRON HYDROCHLORIDE [Concomitant]
     Dosage: PRN
     Route: 042
  6. SODIUM PICOSULFATE [Concomitant]
     Indication: CONSTIPATION
     Route: 049
  7. SENNA EXTRACT [Concomitant]
     Indication: CONSTIPATION
     Route: 049

REACTIONS (3)
  - HALLUCINATION [None]
  - MALAISE [None]
  - PERITONITIS [None]
